FAERS Safety Report 10200417 (Version 1)
Quarter: 2014Q2

REPORT INFORMATION
  Report Type: Spontaneous
  Country: US (occurrence: US)
  Receive Date: 20140528
  Receipt Date: 20140528
  Transmission Date: 20141212
  Serious: Yes (Other)
  Sender: FDA-Public Use
  Company Number: US-AMGEN-USASP2014037772

PATIENT
  Sex: Female

DRUGS (2)
  1. PROLIA [Suspect]
     Indication: OSTEOPENIA
     Route: 065
  2. PROLIA [Suspect]
     Indication: OSTEOPOROSIS POSTMENOPAUSAL

REACTIONS (3)
  - Osteonecrosis of jaw [Unknown]
  - Mouth ulceration [Unknown]
  - Tooth loss [Unknown]
